FAERS Safety Report 23898484 (Version 1)
Quarter: 2024Q2

REPORT INFORMATION
  Report Type: Report from Study
  Country: US (occurrence: US)
  Receive Date: 20240525
  Receipt Date: 20240525
  Transmission Date: 20240716
  Serious: Yes (Death)
  Sender: FDA-Public Use
  Company Number: US-ABBVIE-5772868

PATIENT
  Age: 74 Year

DRUGS (1)
  1. CREON [Suspect]
     Active Substance: PANCRELIPASE AMYLASE\PANCRELIPASE LIPASE\PANCRELIPASE PROTEASE
     Indication: Product used for unknown indication
     Dosage: FORM STRENGTH: 24000 UNIT ?FREQUENCY TEXT: 1 CAP 3X A DAY WITH MEALS
     Route: 048
     Dates: start: 20240228

REACTIONS (1)
  - Death [Fatal]

NARRATIVE: CASE EVENT DATE: 20240501
